FAERS Safety Report 7442623-1 (Version None)
Quarter: 2011Q2

REPORT INFORMATION
  Report Type: 
  Country: None (occurrence: None)
  Receive Date: 20110428
  Receipt Date: 20110417
  Transmission Date: 20111010
  Serious: Yes (Hospitalization)
  Sender: FDA-Public Use
  Company Number: IL-BAXTER-2011BH011780

PATIENT
  Age: 78 Year
  Sex: Male

DRUGS (1)
  1. EXTRANEAL [Suspect]
     Indication: PERITONEAL DIALYSIS
     Route: 033
     Dates: start: 20110331, end: 20110415

REACTIONS (3)
  - PYREXIA [None]
  - DECREASED APPETITE [None]
  - ASTHENIA [None]
